FAERS Safety Report 11324779 (Version 1)
Quarter: 2015Q3

REPORT INFORMATION
  Report Type: Spontaneous
  Country: US (occurrence: US)
  Receive Date: 20150730
  Receipt Date: 20150730
  Transmission Date: 20151125
  Serious: No
  Sender: FDA-Public Use
  Company Number: US-IMPAX LABORATORIES, INC-2015-IPXL-00546

PATIENT
  Sex: Male
  Weight: 95 kg

DRUGS (11)
  1. MIRALAX [Interacting]
     Active Substance: POLYETHYLENE GLYCOL 3350
     Indication: CONSTIPATION
     Dosage: ONE SPOONFUL DAILY
     Route: 048
     Dates: start: 201505, end: 20150505
  2. ASPIRIN. [Concomitant]
     Active Substance: ASPIRIN
     Indication: CARDIOVASCULAR EVENT PROPHYLAXIS
     Dosage: 81 MG, DAILY
     Route: 065
  3. PROVIGIL [Concomitant]
     Active Substance: MODAFINIL
     Indication: PARKINSON^S DISEASE
     Dosage: 200 MG, DAILY
     Route: 065
  4. ZANTAC [Concomitant]
     Active Substance: RANITIDINE HYDROCHLORIDE
     Indication: GASTRIC PH DECREASED
     Dosage: 300 MG, DAILY
     Route: 065
  5. OXYCODONE [Concomitant]
     Active Substance: OXYCODONE
     Indication: RESTLESS LEGS SYNDROME
     Dosage: 5 MG, NIGHTLY
     Route: 065
  6. RYTARY [Suspect]
     Active Substance: CARBIDOPA\LEVODOPA
     Indication: PARKINSON^S DISEASE
     Dosage: (61.25/245) TWO CAPSULES EVERY FOUR HOURS AND (36.25/145) ONE CAPSULE EVERY FOUR HOURS
     Route: 048
     Dates: start: 201504
  7. RYTARY [Interacting]
     Active Substance: CARBIDOPA\LEVODOPA
     Dosage: EVERY 3 HOURS AROUND THE CLOCK.
     Route: 048
  8. PREVACID [Concomitant]
     Active Substance: LANSOPRAZOLE
     Indication: GASTRIC PH DECREASED
     Dosage: 30 MG, DAILY
     Route: 065
  9. PREVACID [Concomitant]
     Active Substance: LANSOPRAZOLE
     Dosage: UNK
  10. COLACE [Concomitant]
     Active Substance: DOCUSATE SODIUM
     Indication: CONSTIPATION
     Dosage: 100 MG, UNK
     Route: 065
  11. VITAMIN D [Concomitant]
     Active Substance: CHOLECALCIFEROL
     Indication: VITAMIN D DEFICIENCY
     Dosage: 3000 IU, DAILY
     Route: 065

REACTIONS (5)
  - Constipation [Unknown]
  - Drug effect decreased [Recovering/Resolving]
  - Drug interaction [Recovered/Resolved]
  - Abnormal faeces [Unknown]
  - Frequent bowel movements [Unknown]
